FAERS Safety Report 4597981-2 (Version None)
Quarter: 2005Q1

REPORT INFORMATION
  Report Type: 
  Country: None (occurrence: None)
  Receive Date: 20050301
  Receipt Date: 20050217
  Transmission Date: 20050727
  Serious: Yes (Hospitalization)
  Sender: FDA-Public Use
  Company Number: 2005033302

PATIENT
  Sex: Female
  Weight: 81.6475 kg

DRUGS (2)
  1. OGEN [Suspect]
     Indication: HOT FLUSH
     Dosage: 3.6 MG (EVERY DAY), ORAL
     Route: 048
     Dates: end: 19990101
  2. CEPHALEXIN MONOHYDRATE [Concomitant]

REACTIONS (9)
  - FEELING COLD [None]
  - HAEMOPTYSIS [None]
  - HYPERTENSION [None]
  - MYOCARDIAL INFARCTION [None]
  - NASOPHARYNGITIS [None]
  - PULMONARY EMBOLISM [None]
  - PULMONARY MASS [None]
  - PYREXIA [None]
  - WEIGHT INCREASED [None]
